FAERS Safety Report 5412051-9 (Version None)
Quarter: 2007Q3

REPORT INFORMATION
  Report Type: 
  Country: None (occurrence: None)
  Receive Date: 20070809
  Receipt Date: 20070731
  Transmission Date: 20080115
  Serious: Yes (Hospitalization)
  Sender: FDA-Public Use
  Company Number: 2007BI016295

PATIENT
  Age: 41 Year
  Sex: Female

DRUGS (1)
  1. NATALIZUMAB [Suspect]
     Indication: MULTIPLE SCLEROSIS
     Dosage: 300 MG QM IV
     Route: 042
     Dates: start: 20060911

REACTIONS (6)
  - BLADDER DISORDER [None]
  - CONDITION AGGRAVATED [None]
  - HYPERTENSION [None]
  - INFECTION [None]
  - PNEUMONIA [None]
  - VOMITING [None]
